FAERS Safety Report 8388350-8 (Version None)
Quarter: 2012Q2

REPORT INFORMATION
  Report Type: 
  Country: None (occurrence: None)
  Receive Date: 20120525
  Receipt Date: 20120515
  Transmission Date: 20120825
  Serious: Yes (Death, Other)
  Sender: FDA-Public Use
  Company Number: US-TEVA-338518USA

PATIENT
  Sex: Male

DRUGS (15)
  1. AMITRIPTYLINE HCL [Concomitant]
     Indication: CIRCADIAN RHYTHM SLEEP DISORDER
     Route: 048
  2. NUVIGIL [Suspect]
     Dosage: 250 MILLIGRAM;
     Route: 048
     Dates: start: 20110610
  3. THIORIDAZINE HYDROCHLORIDE [Concomitant]
     Dosage: 50 MILLIGRAM; PRN
     Route: 048
     Dates: start: 20120305
  4. LISINOPRIL [Concomitant]
     Indication: HYPERTENSION
     Dosage: 40 MILLIGRAM;
     Route: 048
  5. CETIRIZINE HYDROCHLORIDE [Concomitant]
     Indication: HYPERSENSITIVITY
     Dosage: 10 MILLIGRAM;
     Route: 048
  6. VARDENAFIL HYDROCHLORIDE (LEVITRA) [Concomitant]
     Indication: ERECTILE DYSFUNCTION
     Route: 048
  7. TRAZODONE HCL [Concomitant]
     Indication: INSOMNIA
     Route: 048
  8. FLUOXETINE HYDROCHLORIDE [Concomitant]
     Indication: DEPRESSION
     Dosage: 40 MILLIGRAM;
     Route: 048
  9. NAPROXEN [Concomitant]
     Indication: PAIN IN EXTREMITY
     Dosage: 1000 MILLIGRAM;
     Route: 048
  10. FISH OIL [Concomitant]
     Dosage: 2400 MILLIGRAM;
     Route: 048
  11. CYCLOBENZAPRINE HCL [Concomitant]
     Indication: MUSCLE SPASMS
     Route: 048
  12. MECLIZINE HYDROCHLORIDE [Concomitant]
     Indication: DIZZINESS
     Dosage: 25 MILLIGRAM;
     Route: 048
  13. OMEPRAZOLE [Suspect]
     Indication: GASTROOESOPHAGEAL REFLUX DISEASE
     Dosage: 20 MILLIGRAM;
     Route: 048
  14. ACETYLSALICYLIC ACID SRT [Concomitant]
     Dosage: 81 MILLIGRAM;
     Route: 048
  15. ALLOPURINOL [Concomitant]
     Indication: GOUT
     Dosage: 300 MILLIGRAM;
     Route: 048

REACTIONS (2)
  - OVERDOSE [None]
  - DRUG ABUSE [None]
